FAERS Safety Report 4760292-6 (Version None)
Quarter: 2005Q3

REPORT INFORMATION
  Report Type: 
  Country: None (occurrence: None)
  Receive Date: 20050831
  Receipt Date: 20050819
  Transmission Date: 20060218
  Serious: Yes (Hospitalization)
  Sender: FDA-Public Use
  Company Number: 05H-124-0302106-00

PATIENT
  Age: 24 Year
  Sex: Female

DRUGS (3)
  1. ABOCAIN SPINAL INJECTION (BUPIVACAINE HYDROCHLORIDE INJECTION) [Suspect]
     Indication: CAESAREAN SECTION
     Dosage: 12 MG, SINGLE DOSE, INTRATHECAL
     Route: 037
     Dates: start: 20050816, end: 20050816
  2. ABOCAIN SPINAL INJECTION (BUPIVACAINE HYDROCHLORIDE INJECTION) [Suspect]
     Indication: SPINAL ANAESTHESIA
     Dosage: 12 MG, SINGLE DOSE, INTRATHECAL
     Route: 037
     Dates: start: 20050816, end: 20050816
  3. INJECTION METOLOCON [Concomitant]

REACTIONS (6)
  - AGGRESSION [None]
  - ANAESTHETIC COMPLICATION [None]
  - CONVULSION [None]
  - DISORIENTATION [None]
  - DRUG EXPOSURE DURING PREGNANCY [None]
  - VOMITING [None]
